FAERS Safety Report 10489889 (Version 1)
Quarter: 2014Q3

REPORT INFORMATION
  Report Type: Spontaneous
  Country: US (occurrence: None)
  Receive Date: 20140815
  Receipt Date: 20140815
  Transmission Date: 20150326
  Serious: Yes (Hospitalization, Other)
  Sender: FDA-Public Use
  Company Number: ADR-2013-01389

PATIENT
  Age: 39 Year
  Sex: Male

DRUGS (2)
  1. BACLOFEN. [Suspect]
     Active Substance: BACLOFEN
  2. FENTANYL. [Suspect]
     Active Substance: FENTANYL

REACTIONS (3)
  - Incorrect route of drug administration [None]
  - Respiratory arrest [None]
  - Unevaluable event [None]
